FAERS Safety Report 6648199-0 (Version None)
Quarter: 2010Q1

REPORT INFORMATION
  Report Type: 
  Country: None (occurrence: None)
  Receive Date: 20100324
  Receipt Date: 20100319
  Transmission Date: 20100710
  Serious: Yes (Hospitalization)
  Sender: FDA-Public Use
  Company Number: FR-SANOFI-AVENTIS-2010SA015837

PATIENT
  Age: 22 Year
  Sex: Female

DRUGS (11)
  1. TRAMADOL HCL [Suspect]
     Route: 048
     Dates: start: 20091119, end: 20091119
  2. LOVENOX [Suspect]
     Route: 058
     Dates: start: 20091119
  3. KETOPROFEN [Suspect]
     Route: 048
     Dates: start: 20091119, end: 20091121
  4. PERFALGAN [Suspect]
     Route: 042
     Dates: start: 20091119, end: 20091122
  5. SPASFON [Concomitant]
     Route: 048
     Dates: start: 20091119
  6. NEXIUM /UNK/ [Concomitant]
     Route: 048
     Dates: start: 20091119
  7. ZOPHREN [Concomitant]
     Route: 042
     Dates: start: 20091119
  8. LASIX [Concomitant]
     Dates: start: 20091119
  9. LIORESAL ^NOVARTIS^ [Concomitant]
     Indication: SPASTIC PARALYSIS
     Dates: start: 20040301
  10. NUBAIN [Concomitant]
     Dates: start: 20091120
  11. ACUPAN [Concomitant]
     Dates: start: 20091120

REACTIONS (8)
  - ALANINE AMINOTRANSFERASE INCREASED [None]
  - ASPARTATE AMINOTRANSFERASE INCREASED [None]
  - COAGULATION FACTOR V LEVEL DECREASED [None]
  - CYTOLYTIC HEPATITIS [None]
  - HEADACHE [None]
  - PROTHROMBIN TIME SHORTENED [None]
  - SOMNOLENCE [None]
  - VOMITING [None]
